FAERS Safety Report 21874090 (Version 1)
Quarter: 2023Q1

REPORT INFORMATION
  Report Type: Other
  Country: US (occurrence: US)
  Receive Date: 20230117
  Receipt Date: 20230117
  Transmission Date: 20230417
  Serious: Yes (Hospitalization)
  Sender: FDA-Public Use
  Company Number: US-NPI-000007

PATIENT
  Age: 58 Year
  Sex: Male

DRUGS (2)
  1. NEOSTIGMINE METHYLSULFATE [Suspect]
     Active Substance: NEOSTIGMINE METHYLSULFATE
     Indication: Product used for unknown indication
     Route: 042
  2. PYRIDOSTIGMINE [Suspect]
     Active Substance: PYRIDOSTIGMINE
     Indication: Product used for unknown indication
     Route: 048

REACTIONS (6)
  - Intestinal pseudo-obstruction [Recovered/Resolved]
  - Disease recurrence [Unknown]
  - Abdominal distension [Recovered/Resolved]
  - Therapy non-responder [Unknown]
  - Acute cardiac event [Unknown]
  - Condition aggravated [Unknown]
